FAERS Safety Report 15809997 (Version 1)
Quarter: 2019Q1

REPORT INFORMATION
  Report Type: Spontaneous
  Country: US (occurrence: US)
  Receive Date: 20190111
  Receipt Date: 20190111
  Transmission Date: 20190417
  Serious: No
  Sender: FDA-Public Use
  Company Number: US-ROCHE-2130920

PATIENT
  Age: 62 Year
  Sex: Female
  Weight: 81.72 kg

DRUGS (6)
  1. OCREVUS [Suspect]
     Active Substance: OCRELIZUMAB
     Indication: RELAPSING-REMITTING MULTIPLE SCLEROSIS
     Route: 065
     Dates: start: 201805
  2. RITUXAN [Suspect]
     Active Substance: RITUXIMAB
     Indication: RELAPSING-REMITTING MULTIPLE SCLEROSIS
     Route: 042
  3. DIPHENHYDRAMINE. [Concomitant]
     Active Substance: DIPHENHYDRAMINE
     Dosage: AT EACH INFUSION
     Route: 048
     Dates: start: 201710, end: 201710
  4. SOLU-MEDROL [Concomitant]
     Active Substance: METHYLPREDNISOLONE SODIUM SUCCINATE
     Dosage: AT EACH INFUSION
     Route: 042
     Dates: start: 201710, end: 201710
  5. TYLENOL [Concomitant]
     Active Substance: ACETAMINOPHEN
     Dosage: AT EACH INFUSION
     Route: 048
     Dates: start: 201710, end: 201710
  6. RITUXAN [Suspect]
     Active Substance: RITUXIMAB
     Dosage: 2 TIMES YEAR
     Route: 042
     Dates: start: 201710, end: 201710

REACTIONS (4)
  - Malaise [Unknown]
  - Off label use [Unknown]
  - Intentional product use issue [Unknown]
  - Malaise [Recovered/Resolved]

NARRATIVE: CASE EVENT DATE: 201710
